FAERS Safety Report 7035873-X (Version None)
Quarter: 2010Q4

REPORT INFORMATION
  Report Type: 
  Country: None (occurrence: None)
  Receive Date: 20101008
  Receipt Date: 20100929
  Transmission Date: 20110411
  Serious: Yes (Other)
  Sender: FDA-Public Use
  Company Number: GXKR2010SE11040

PATIENT
  Age: 57 Year
  Sex: Female

DRUGS (6)
  1. OMEPRAZOLE (NGX) [Suspect]
     Dosage: 20-40 MG/DAY
     Route: 065
     Dates: start: 20000101
  2. PREDNISOLONE (NGX) [Suspect]
     Dosage: UNK
     Route: 065
  3. ALENDRONIC ACID (NGX) [Suspect]
     Dosage: 70 MG/WEEK
     Route: 065
     Dates: start: 20010101
  4. RISEDRONATE SODIUM (NGX) [Suspect]
     Dosage: 35 MG/WEEK
     Route: 065
     Dates: start: 20020101
  5. CORTISONE [Suspect]
     Indication: RHEUMATOID ARTHRITIS
     Dosage: 5 MG/DAY
     Route: 065
  6. CORTISONE [Suspect]
     Dosage: 25 MG/DAY (DURING EXACERBATIONS)
     Route: 065

REACTIONS (3)
  - BONE OPERATION [None]
  - FALL [None]
  - STRESS FRACTURE [None]
